FAERS Safety Report 6750188-2 (Version None)
Quarter: 2010Q2

REPORT INFORMATION
  Report Type: 
  Country: None (occurrence: None)
  Receive Date: 20100601
  Receipt Date: 20100521
  Transmission Date: 20101027
  Serious: Yes (Other)
  Sender: FDA-Public Use
  Company Number: MT-PFIZER INC-2010056363

PATIENT
  Age: 26 Year
  Sex: Female

DRUGS (1)
  1. VIAGRA [Suspect]
     Dosage: 25 MG, UNK
     Route: 050

REACTIONS (1)
  - ABORTION SPONTANEOUS [None]
